FAERS Safety Report 9642433 (Version 3)
Quarter: 2014Q1

REPORT INFORMATION
  Report Type: Report from Study
  Country: MX (occurrence: MX)
  Receive Date: 20131024
  Receipt Date: 20140120
  Transmission Date: 20141002
  Serious: Yes (Disabling)
  Sender: FDA-Public Use
  Company Number: MX-ROCHE-1220282

PATIENT
  Age: 47 Year
  Sex: Female
  Weight: 47 kg

DRUGS (7)
  1. HERCEPTIN [Suspect]
     Indication: BREAST CANCER
     Route: 042
     Dates: start: 201301, end: 20130730
  2. APREPITANT [Suspect]
     Indication: BREAST CANCER
     Dosage: 125/80 MG
     Route: 042
     Dates: start: 201301, end: 20130730
  3. DOCETAXEL [Suspect]
     Indication: BREAST CANCER
     Route: 042
     Dates: start: 201301, end: 20130730
  4. DEXAMETHASONE [Suspect]
     Indication: BREAST CANCER
     Route: 042
     Dates: start: 201301, end: 20130730
  5. METILPREDNISOLONE [Suspect]
     Indication: BREAST CANCER
     Route: 042
     Dates: start: 201301, end: 20130730
  6. OMEPRAZOLE [Concomitant]
     Indication: COLITIS
     Route: 065
  7. ANASTROZOLE [Concomitant]
     Indication: BREAST CANCER
     Route: 048
     Dates: start: 201310

REACTIONS (29)
  - Hypotonia [Unknown]
  - Gait disturbance [Recovered/Resolved]
  - Fatigue [Recovered/Resolved]
  - Decreased appetite [Unknown]
  - Dysgeusia [Not Recovered/Not Resolved]
  - Paraesthesia oral [Not Recovered/Not Resolved]
  - Dyspepsia [Not Recovered/Not Resolved]
  - Diarrhoea [Recovered/Resolved]
  - Nausea [Not Recovered/Not Resolved]
  - Flatulence [Not Recovered/Not Resolved]
  - Fatigue [Not Recovered/Not Resolved]
  - Depression [Recovering/Resolving]
  - Emotional disorder [Recovering/Resolving]
  - Stress [Unknown]
  - Weight decreased [Not Recovered/Not Resolved]
  - Dehydration [Not Recovered/Not Resolved]
  - Colitis [Not Recovered/Not Resolved]
  - Ileus paralytic [Recovered/Resolved]
  - Vomiting [Recovered/Resolved]
  - Abdominal pain [Not Recovered/Not Resolved]
  - Constipation [Recovered/Resolved]
  - Tachycardia [Not Recovered/Not Resolved]
  - Pyrexia [Not Recovered/Not Resolved]
  - Pruritus [Not Recovered/Not Resolved]
  - Skin burning sensation [Recovered/Resolved]
  - Diarrhoea [Unknown]
  - Asthenia [Recovered/Resolved]
  - Bone pain [Recovered/Resolved]
  - Skin discolouration [Recovered/Resolved]
